FAERS Safety Report 25774236 (Version 4)
Quarter: 2025Q4

REPORT INFORMATION
  Report Type: Report from Study
  Country: CO (occurrence: CO)
  Receive Date: 20250908
  Receipt Date: 20251031
  Transmission Date: 20260117
  Serious: Yes (Life-Threatening)
  Sender: NOVARTIS
  Company Number: CO-002147023-NVSC2025CO085769

PATIENT
  Sex: Female
  Weight: 56 kg

DRUGS (2)
  1. COSENTYX [Suspect]
     Active Substance: SECUKINUMAB
     Indication: Psoriasis
     Dosage: 300 MG, QMO
     Route: 058
     Dates: start: 20240528, end: 202508
  2. COSENTYX [Suspect]
     Active Substance: SECUKINUMAB
     Indication: Osteoarthritis
     Dosage: 150 MG, QMO
     Route: 058

REACTIONS (14)
  - Feeling abnormal [Unknown]
  - Fatigue [Unknown]
  - Decreased appetite [Recovering/Resolving]
  - Nausea [Recovered/Resolved]
  - Ill-defined disorder [Unknown]
  - Feeding disorder [Recovering/Resolving]
  - Food aversion [Recovering/Resolving]
  - Illness [Unknown]
  - Thyroid disorder [Unknown]
  - Fibromyalgia [Unknown]
  - Product dose omission issue [Unknown]
  - Off label use [Unknown]
  - Product use in unapproved indication [Unknown]
  - Tremor [Recovered/Resolved]
